FAERS Safety Report 9289957 (Version 2)
Quarter: 2013Q2

REPORT INFORMATION
  Report Type: Spontaneous
  Country: US (occurrence: US)
  Receive Date: 20130515
  Receipt Date: 20130528
  Transmission Date: 20140414
  Serious: Yes (Other)
  Sender: FDA-Public Use
  Company Number: US-UCBSA-085930

PATIENT
  Sex: Male

DRUGS (4)
  1. VIMPAT [Suspect]
     Indication: CONVULSION
     Dosage: 50 MG  (3 TABLETS IN THE MORNING AND 2 TABLETS AT NIGHT)
     Dates: start: 201302
  2. KEPPRA XR [Suspect]
     Indication: CONVULSION
     Dosage: 750 MG (2 TABLETS IN THE MORNING AND 2 TABLETS IN THE EVENING)
  3. KEPPRA XR [Suspect]
     Indication: CONVULSION
     Dosage: DOSE INCREASED
  4. DILANTIN [Concomitant]

REACTIONS (6)
  - Grand mal convulsion [Recovered/Resolved]
  - Blindness unilateral [Recovered/Resolved]
  - Petit mal epilepsy [Unknown]
  - Stress [Unknown]
  - Balance disorder [Recovered/Resolved]
  - Inappropriate schedule of drug administration [Unknown]
